FAERS Safety Report 17257122 (Version 1)
Quarter: 2020Q1

REPORT INFORMATION
  Report Type: Spontaneous
  Country: US (occurrence: US)
  Receive Date: 20200109
  Receipt Date: 20200109
  Transmission Date: 20200409
  Serious: No
  Sender: FDA-Public Use
  Company Number: None

PATIENT
  Age: 61 Year
  Sex: Male

DRUGS (1)
  1. RITUXAN [Suspect]
     Active Substance: RITUXIMAB
     Indication: NON-HODGKIN^S LYMPHOMA
     Dosage: ?          OTHER FREQUENCY:WEEKLY X4 2X/YR;?
     Route: 041
     Dates: start: 20190104

REACTIONS (3)
  - Infusion related reaction [None]
  - Ear pruritus [None]
  - Erythema [None]

NARRATIVE: CASE EVENT DATE: 20200107
